FAERS Safety Report 20382669 (Version 1)
Quarter: 2022Q1

REPORT INFORMATION
  Report Type: Spontaneous
  Country: DE (occurrence: DE)
  Receive Date: 20220127
  Receipt Date: 20220127
  Transmission Date: 20220423
  Serious: Yes (Other)
  Sender: FDA-Public Use
  Company Number: DE-ELI_LILLY_AND_COMPANY-DE202201006623

PATIENT
  Age: 45 Year
  Sex: Male

DRUGS (3)
  1. PEMETREXED [Suspect]
     Active Substance: PEMETREXED
     Indication: Non-small cell lung cancer
     Dosage: 375 MG/M2, UNKNOWN
     Route: 065
  2. PEMBROLIZUMAB [Suspect]
     Active Substance: PEMBROLIZUMAB
     Indication: Non-small cell lung cancer
     Dosage: 200 MG Q3W
     Route: 065
  3. CARBOPLATIN [Concomitant]
     Active Substance: CARBOPLATIN
     Indication: Non-small cell lung cancer

REACTIONS (8)
  - Pleural effusion [Recovering/Resolving]
  - Ascites [Recovering/Resolving]
  - Hypervolaemia [Recovering/Resolving]
  - Respiratory symptom [Recovering/Resolving]
  - Oedema peripheral [Recovering/Resolving]
  - Pneumonitis [Recovering/Resolving]
  - COVID-19 pneumonia [Recovering/Resolving]
  - Febrile neutropenia [Recovering/Resolving]
